FAERS Safety Report 7642453-1 (Version None)
Quarter: 2011Q3

REPORT INFORMATION
  Report Type: 
  Country: None (occurrence: None)
  Receive Date: 20110728
  Receipt Date: 20110715
  Transmission Date: 20111222
  Serious: Yes (Hospitalization)
  Sender: FDA-Public Use
  Company Number: DK-JNJFOC-20110707266

PATIENT
  Age: 15 Year
  Sex: Male

DRUGS (2)
  1. REMICADE [Suspect]
     Dosage: 1ST DOSE
     Route: 042
     Dates: start: 20090909
  2. REMICADE [Suspect]
     Indication: CROHN'S DISEASE
     Dosage: 4TH DOSE
     Route: 042
     Dates: start: 20091221

REACTIONS (1)
  - ENCEPHALITIS [None]
